FAERS Safety Report 5647620-4 (Version None)
Quarter: 2008Q1

REPORT INFORMATION
  Report Type: 
  Country: None (occurrence: None)
  Receive Date: 20080303
  Receipt Date: 20080222
  Transmission Date: 20080703
  Serious: Yes (Other)
  Sender: FDA-Public Use
  Company Number: AU-PFIZER INC-2008017385

PATIENT
  Sex: Female

DRUGS (3)
  1. CELEBREX [Suspect]
     Indication: OSTEOARTHRITIS
     Route: 048
  2. PANADOL [Concomitant]
  3. TRAMAL [Concomitant]
     Indication: BREAKTHROUGH PAIN

REACTIONS (6)
  - EPSTEIN-BARR VIRUS INFECTION [None]
  - IMMUNODEFICIENCY [None]
  - LIVER FUNCTION TEST ABNORMAL [None]
  - LOWER RESPIRATORY TRACT INFECTION [None]
  - PSORIASIS [None]
  - ROSACEA [None]
